FAERS Safety Report 15231248 (Version 1)
Quarter: 2018Q3

REPORT INFORMATION
  Report Type: Spontaneous
  Country: IT (occurrence: IT)
  Receive Date: 20180802
  Receipt Date: 20180802
  Transmission Date: 20181010
  Serious: Yes (Hospitalization)
  Sender: FDA-Public Use
  Company Number: PHHY2018IT060127

PATIENT
  Age: 69 Year
  Sex: Female

DRUGS (1)
  1. AMOXICILLIN. [Suspect]
     Active Substance: AMOXICILLIN
     Indication: PRODUCT USE IN UNAPPROVED INDICATION
     Dosage: 2 G, UNK (TOTAL)
     Route: 048
     Dates: start: 20180528

REACTIONS (3)
  - Asthenia [Recovered/Resolved]
  - Erythema [Recovered/Resolved]
  - Dysphonia [Recovered/Resolved]

NARRATIVE: CASE EVENT DATE: 20180529
